FAERS Safety Report 25395779 (Version 9)
Quarter: 2025Q4

REPORT INFORMATION
  Report Type: Report from Study
  Country: CA (occurrence: None)
  Receive Date: 20250604
  Receipt Date: 20251203
  Transmission Date: 20260117
  Serious: Yes (Hospitalization, Other)
  Sender: UCB
  Company Number: CA-UCBSA-2025032765

PATIENT
  Age: 76 Year

DRUGS (6)
  1. CERTOLIZUMAB PEGOL [Suspect]
     Active Substance: CERTOLIZUMAB PEGOL
     Indication: Rheumatoid arthritis
     Dosage: 400 MILLIGRAM, EV 4 WEEKS
  2. CERTOLIZUMAB PEGOL [Suspect]
     Active Substance: CERTOLIZUMAB PEGOL
     Dosage: 400 MILLIGRAM, EV 4 WEEKS
  3. SULFASALAZINE [Concomitant]
     Active Substance: SULFASALAZINE
     Indication: Product used for unknown indication
     Dosage: UNK
  4. CHOLESTYRAMINE [Concomitant]
     Active Substance: CHOLESTYRAMINE
     Indication: Product used for unknown indication
     Dosage: UNK, DAILY
  5. CHOLESTYRAMINE [Concomitant]
     Active Substance: CHOLESTYRAMINE
     Dosage: UNK, 3 TIMES DAILY
  6. LEFLUNOMIDE [Concomitant]
     Active Substance: LEFLUNOMIDE
     Indication: Product used for unknown indication
     Dosage: UNK

REACTIONS (17)
  - Colitis [Recovering/Resolving]
  - Vomiting [Not Recovered/Not Resolved]
  - Dehydration [Not Recovered/Not Resolved]
  - Clostridium difficile infection [Not Recovered/Not Resolved]
  - Decreased appetite [Not Recovered/Not Resolved]
  - Large intestine polyp [Recovering/Resolving]
  - Large intestinal polypectomy [Recovering/Resolving]
  - Frustration tolerance decreased [Not Recovered/Not Resolved]
  - Insomnia [Recovering/Resolving]
  - Diarrhoea [Not Recovered/Not Resolved]
  - Asthenia [Recovering/Resolving]
  - Weight decreased [Recovering/Resolving]
  - Musculoskeletal stiffness [Recovering/Resolving]
  - Fall [Unknown]
  - Injury [Unknown]
  - Pain [Unknown]
  - Product dose omission issue [Unknown]
